FAERS Safety Report 6749313-9 (Version None)
Quarter: 2010Q2

REPORT INFORMATION
  Report Type: 
  Country: None (occurrence: None)
  Receive Date: 20100601
  Receipt Date: 20100521
  Transmission Date: 20101027
  Serious: Yes (Death, Other)
  Sender: FDA-Public Use
  Company Number: PL-ROCHE-590490

PATIENT
  Age: 44 Year
  Sex: Female

DRUGS (9)
  1. HERCEPTIN [Suspect]
     Dosage: LOADING DOSE
     Route: 065
     Dates: start: 20060401
  2. HERCEPTIN [Suspect]
     Route: 065
     Dates: start: 20060401, end: 20060901
  3. HERCEPTIN [Suspect]
     Dosage: LOADING DOSE
     Route: 065
  4. HERCEPTIN [Suspect]
     Route: 065
     Dates: start: 20061001, end: 20070401
  5. CAPECITABINE [Suspect]
     Dosage: ON DAYS 1-14 EVERY 21 DAYS
     Route: 065
     Dates: start: 20070701
  6. CAPECITABINE [Suspect]
     Dosage: DOSE REDUCED TO 75% OF THE OPTIMAL ONE.
     Route: 065
     Dates: end: 20071101
  7. LAPATINIB [Suspect]
     Dosage: ON DAYS 1-14 EVERY 21 DAYS
     Route: 065
     Dates: start: 20070701
  8. LAPATINIB [Suspect]
     Dosage: DOSE DECREASED BY 25%.
     Route: 065
     Dates: end: 20071101
  9. PACLITAXEL [Concomitant]
     Dates: start: 20060401, end: 20060901

REACTIONS (6)
  - CARDIOTOXICITY [None]
  - DIARRHOEA [None]
  - DISEASE PROGRESSION [None]
  - GASTRODUODENITIS [None]
  - METASTASES TO CENTRAL NERVOUS SYSTEM [None]
  - PALMAR-PLANTAR ERYTHRODYSAESTHESIA SYNDROME [None]
